FAERS Safety Report 6645185-1 (Version None)
Quarter: 2010Q1

REPORT INFORMATION
  Report Type: 
  Country: None (occurrence: None)
  Receive Date: 20100308
  Receipt Date: 20100222
  Transmission Date: 20100710
  Serious: No
  Sender: FDA-Public Use
  Company Number: 2010-00283

PATIENT
  Age: 76 Year
  Sex: Male
  Weight: 78.0187 kg

DRUGS (3)
  1. ZICAM COLD REMEDY NASAL GEL [Suspect]
     Dosage: Q 4-6 HRS - 1 WEEK [AFTER 1 WEEK]
     Dates: start: 20080101
  2. MULTI-VITAMIN [Concomitant]
  3. VITAMIN D [Concomitant]

REACTIONS (1)
  - ANOSMIA [None]
